FAERS Safety Report 6139813-7 (Version None)
Quarter: 2009Q2

REPORT INFORMATION
  Report Type: 
  Country: None (occurrence: None)
  Receive Date: 20090401
  Receipt Date: 20090326
  Transmission Date: 20091009
  Serious: Yes (Other)
  Sender: FDA-Public Use
  Company Number: B0567005A

PATIENT
  Sex: Female

DRUGS (2)
  1. FLIXONASE [Suspect]
     Indication: DRUG USE FOR UNKNOWN INDICATION
     Route: 045
     Dates: start: 20090301
  2. FLIXONASE SPRAY [Concomitant]

REACTIONS (3)
  - HAEMORRHAGE [None]
  - PRODUCT QUALITY ISSUE [None]
  - SCRATCH [None]
